FAERS Safety Report 5118179-5 (Version None)
Quarter: 2006Q3

REPORT INFORMATION
  Report Type: 
  Country: None (occurrence: None)
  Receive Date: 20060928
  Receipt Date: 20060928
  Transmission Date: 20061208
  Serious: Yes (Hospitalization, Disabling)
  Sender: FDA-Public Use
  Company Number: None

PATIENT
  Age: 53 Year
  Sex: Male
  Weight: 83.5 kg

DRUGS (3)
  1. GEMFIBROZIL [Suspect]
     Indication: HYPERTRIGLYCERIDAEMIA
     Dosage: 600MG DAILY PO
     Route: 048
  2. MOXIFLOXACIN HCL [Suspect]
     Indication: CELLULITIS
     Dosage: 400MG DAILY PO
     Route: 048
     Dates: start: 20060911, end: 20060920
  3. METFORMIN HCL [Concomitant]

REACTIONS (11)
  - ABDOMINAL PAIN [None]
  - CHEST PAIN [None]
  - DIARRHOEA [None]
  - FAECES DISCOLOURED [None]
  - GINGIVAL PAIN [None]
  - NAUSEA [None]
  - ORAL INTAKE REDUCED [None]
  - PAIN [None]
  - RHABDOMYOLYSIS [None]
  - SWELLING [None]
  - VOMITING [None]
